FAERS Safety Report 5060934-4 (Version None)
Quarter: 2006Q3

REPORT INFORMATION
  Report Type: 
  Country: None (occurrence: None)
  Receive Date: 20060721
  Receipt Date: 20060710
  Transmission Date: 20061208
  Serious: Yes (Death, Hospitalization)
  Sender: FDA-Public Use
  Company Number: 2006BI008577

PATIENT
  Age: 65 Year
  Sex: Female

DRUGS (32)
  1. AVONEX [Suspect]
     Indication: MULTIPLE SCLEROSIS
     Dosage: QW;IM
     Route: 030
     Dates: start: 19950101
  2. AVONEX [Suspect]
     Indication: MULTIPLE SCLEROSIS
     Dosage: 30 UG;QW;IM
     Route: 030
     Dates: start: 20031201
  3. DURAGESIC-100 [Concomitant]
  4. DULCOLAX [Concomitant]
  5. LABETALOL HCL [Concomitant]
  6. PHENERGAN HCL [Concomitant]
  7. LORATADINE [Concomitant]
  8. ROBAXIN [Concomitant]
  9. DELSYM [Concomitant]
  10. ARTIFICIAL TEARS [Concomitant]
  11. SUDAFED 12 HOUR [Concomitant]
  12. DARVOCET [Concomitant]
  13. ESTRADIOL INJ [Concomitant]
  14. VITAMIN D [Concomitant]
  15. PREMARIN [Concomitant]
  16. K-DUR 10 [Concomitant]
  17. VYTORIN [Concomitant]
  18. FLONASE [Concomitant]
  19. ALEVE (CAPLET) [Concomitant]
  20. QUININE SULFATE [Concomitant]
  21. VITAMIN E [Concomitant]
  22. MAGNESIUM OXIDE [Concomitant]
  23. BACLOFEN [Concomitant]
  24. LYRICA [Concomitant]
  25. CATAPRES-TTS-1 [Concomitant]
  26. ZOLOFT [Concomitant]
  27. DESYREL [Concomitant]
  28. NAPROSYN [Concomitant]
  29. TUMS [Concomitant]
  30. QDALL [Concomitant]
  31. ENABLEX [Concomitant]
  32. ADVAIR DISKUS 100/50 [Concomitant]

REACTIONS (27)
  - ACUTE MYOCARDIAL INFARCTION [None]
  - ALANINE AMINOTRANSFERASE INCREASED [None]
  - ASPARTATE AMINOTRANSFERASE INCREASED [None]
  - BLOOD ALBUMIN DECREASED [None]
  - BLOOD ALKALINE PHOSPHATASE INCREASED [None]
  - BLOOD CALCIUM INCREASED [None]
  - BLOOD PRESSURE SYSTOLIC INCREASED [None]
  - CORONARY ARTERY DISEASE [None]
  - GASTRITIS [None]
  - HAEMODYNAMIC INSTABILITY [None]
  - LOCALISED INFECTION [None]
  - MULTIPLE SCLEROSIS [None]
  - MUSCLE SPASMS [None]
  - OESOPHAGITIS [None]
  - OXYGEN SATURATION INCREASED [None]
  - PAIN [None]
  - PLATELET COUNT INCREASED [None]
  - POST PROCEDURAL COMPLICATION [None]
  - PROTEIN TOTAL DECREASED [None]
  - RESPIRATORY RATE INCREASED [None]
  - SEPSIS [None]
  - STAPHYLOCOCCAL INFECTION [None]
  - THERAPY NON-RESPONDER [None]
  - UPPER LIMB FRACTURE [None]
  - URINARY TRACT INFECTION [None]
  - WHITE BLOOD CELL COUNT INCREASED [None]
  - X-RAY ABNORMAL [None]
